FAERS Safety Report 8048602-8 (Version None)
Quarter: 2012Q1

REPORT INFORMATION
  Report Type: 
  Country: None (occurrence: None)
  Receive Date: 20120117
  Receipt Date: 20120110
  Transmission Date: 20120608
  Serious: Yes (Other)
  Sender: FDA-Public Use
  Company Number: DK-PFIZER INC-2012010143

PATIENT
  Age: 43 Year
  Sex: Female

DRUGS (1)
  1. VARENICLINE TARTRATE [Suspect]

REACTIONS (6)
  - PSYCHIATRIC SYMPTOM [None]
  - ABDOMINAL PAIN UPPER [None]
  - HEADACHE [None]
  - CRYING [None]
  - NAUSEA [None]
  - VOMITING [None]
